FAERS Safety Report 16421389 (Version 3)
Quarter: 2021Q1

REPORT INFORMATION
  Report Type: Spontaneous
  Country: US (occurrence: US)
  Receive Date: 20190612
  Receipt Date: 20210114
  Transmission Date: 20210419
  Serious: No
  Sender: FDA-Public Use
  Company Number: US-ALEXION PHARMACEUTICALS INC.-A201908582

PATIENT
  Age: 8 Year
  Sex: Male
  Weight: 20.3 kg

DRUGS (3)
  1. STRENSIQ [Suspect]
     Active Substance: ASFOTASE ALFA
     Indication: HYPOPHOSPHATASIA
     Dosage: 32 MG, TIW
     Route: 058
     Dates: start: 201805
  2. STRENSIQ [Suspect]
     Active Substance: ASFOTASE ALFA
     Dosage: 32 MG, BIW
     Route: 058
     Dates: start: 201905
  3. STRENSIQ [Suspect]
     Active Substance: ASFOTASE ALFA
     Dosage: 36 MG, TIW
     Route: 065

REACTIONS (3)
  - Arthralgia [Not Recovered/Not Resolved]
  - Blood alkaline phosphatase increased [Recovering/Resolving]
  - Lipohypertrophy [Not Recovered/Not Resolved]

NARRATIVE: CASE EVENT DATE: 20190201
